FAERS Safety Report 24353669 (Version 3)
Quarter: 2024Q4

REPORT INFORMATION
  Report Type: Spontaneous
  Country: FR (occurrence: FR)
  Receive Date: 20240923
  Receipt Date: 20241004
  Transmission Date: 20250115
  Serious: Yes (Hospitalization)
  Sender: ALNYLAM PHARMACEUTICALS
  Company Number: FR-ALNYLAM PHARMACEUTICALS, INC.-ALN-2024-005109

PATIENT

DRUGS (2)
  1. AMVUTTRA [Suspect]
     Active Substance: VUTRISIRAN
     Indication: Hereditary neuropathic amyloidosis
     Dosage: 25 MILLIGRAM, Q3M
     Route: 058
     Dates: start: 20240216, end: 20240216
  2. LEVOTHYROXINE [Concomitant]
     Active Substance: LEVOTHYROXINE
     Indication: Hypothyroidism
     Dosage: 25 MICROGRAM FOR SEVERAL YEARS
     Route: 048

REACTIONS (2)
  - Nausea [Recovering/Resolving]
  - Fatigue [Not Recovered/Not Resolved]

NARRATIVE: CASE EVENT DATE: 20240301
